FAERS Safety Report 25828602 (Version 2)
Quarter: 2025Q3

REPORT INFORMATION
  Report Type: Spontaneous
  Country: CN (occurrence: CN)
  Receive Date: 20250922
  Receipt Date: 20250923
  Transmission Date: 20251021
  Serious: Yes (Other)
  Sender: UCB
  Company Number: CN-NEUROGEN (ZHUHAI) PHARMA CO., LTD.-2025NG05390

PATIENT
  Age: 7 Year
  Sex: Female
  Weight: 34 kg

DRUGS (4)
  1. VIMPAT [Suspect]
     Active Substance: LACOSAMIDE
     Indication: Epilepsy
     Dosage: 11 MILLILITER, 2X/DAY (BID) (22 MILLILITER, DAILY)
     Route: 048
     Dates: start: 202508
  2. VIMPAT [Suspect]
     Active Substance: LACOSAMIDE
     Dosage: 11 MILLILITER, 2X/DAY (BID) (22 MILLILITER, DAILY)
     Route: 048
     Dates: start: 202508, end: 202508
  3. VIMPAT [Suspect]
     Active Substance: LACOSAMIDE
     Route: 048
     Dates: start: 202508
  4. KEPPRA [Concomitant]
     Active Substance: LEVETIRACETAM
     Indication: Epilepsy
     Dosage: 9 MILLILITER, 2X/DAY (BID) (18 MILLILITERS, DAILY)
     Route: 048

REACTIONS (3)
  - Epilepsy [Recovered/Resolved]
  - Product delivery mechanism issue [Unknown]
  - Product packaging issue [Unknown]

NARRATIVE: CASE EVENT DATE: 20250801
